FAERS Safety Report 7395300-X (Version None)
Quarter: 2011Q2

REPORT INFORMATION
  Report Type: 
  Country: None (occurrence: None)
  Receive Date: 20110405
  Receipt Date: 20110330
  Transmission Date: 20111010
  Serious: Yes (Other)
  Sender: FDA-Public Use
  Company Number: US-PFIZER INC-2011072013

PATIENT
  Sex: Male
  Weight: 112 kg

DRUGS (4)
  1. JANUMET [Concomitant]
     Indication: DIABETES MELLITUS
     Dosage: UNK
  2. LISINOPRIL [Concomitant]
     Indication: HYPERTENSION
     Dosage: 10 MG, 1X/DAY, IN THE MORNING
  3. LYRICA [Suspect]
     Indication: DIABETIC NEUROPATHY
     Dosage: 60 MG, 2X/DAY
     Route: 048
     Dates: end: 20110301
  4. GLYBURIDE AND METFORMIN HCL [Concomitant]
     Indication: DIABETES MELLITUS
     Dosage: 500/2.5 MG ONCE DAILY

REACTIONS (1)
  - BLOOD GLUCOSE INCREASED [None]
